FAERS Safety Report 15733907 (Version 1)
Quarter: 2018Q4

REPORT INFORMATION
  Report Type: Spontaneous
  Country: US (occurrence: US)
  Receive Date: 20181218
  Receipt Date: 20181218
  Transmission Date: 20190205
  Serious: No
  Sender: FDA-Public Use
  Company Number: US-PFIZER INC-2018515123

PATIENT
  Age: 69 Year
  Sex: Female

DRUGS (1)
  1. SOMAVERT [Suspect]
     Active Substance: PEGVISOMANT
     Indication: ACROMEGALY
     Dosage: 20 MG, DAILY
     Route: 058
     Dates: start: 20181101

REACTIONS (4)
  - Swollen tongue [Unknown]
  - Product dose omission [Unknown]
  - Speech disorder [Unknown]
  - Constipation [Unknown]

NARRATIVE: CASE EVENT DATE: 2018
